FAERS Safety Report 19226905 (Version 2)
Quarter: 2021Q2

REPORT INFORMATION
  Report Type: Spontaneous
  Country: CA (occurrence: CA)
  Receive Date: 20210506
  Receipt Date: 20210519
  Transmission Date: 20210717
  Serious: Yes (Other)
  Sender: FDA-Public Use
  Company Number: CA-PURDUE-USA-2021-0255148

PATIENT
  Sex: Male

DRUGS (5)
  1. PERCOCET [Suspect]
     Active Substance: ACETAMINOPHEN\OXYCODONE HYDROCHLORIDE
     Indication: PAIN
     Dosage: 1 TABLET, AM
     Route: 065
  2. PERCOCET [Suspect]
     Active Substance: ACETAMINOPHEN\OXYCODONE HYDROCHLORIDE
     Dosage: 2 TABLET, PRN
     Route: 065
  3. OXYNEO [Suspect]
     Active Substance: OXYCODONE
     Indication: PAIN
     Dosage: 40 MG, AM
     Route: 065
     Dates: end: 20210418
  4. WELLBUTRIN [Concomitant]
     Active Substance: BUPROPION HYDROCHLORIDE
     Indication: PRODUCT USED FOR UNKNOWN INDICATION
  5. PANCREATIC ENZYMES [Concomitant]
     Active Substance: UNSPECIFIED INGREDIENT
     Indication: PRODUCT USED FOR UNKNOWN INDICATION
     Dosage: ON OCCASION
     Route: 065
     Dates: end: 20210428

REACTIONS (12)
  - Abdominal pain [Unknown]
  - Product administration error [Unknown]
  - Intentional dose omission [Unknown]
  - Constipation [Unknown]
  - Drug ineffective [Unknown]
  - Off label use [Unknown]
  - Haematochezia [Not Recovered/Not Resolved]
  - Pancreatic cyst [Recovered/Resolved]
  - Abdominal pain [Not Recovered/Not Resolved]
  - Pancreatitis [Recovered/Resolved]
  - Product residue present [Not Recovered/Not Resolved]
  - Bowel movement irregularity [Unknown]
